FAERS Safety Report 4893932-1 (Version None)
Quarter: 2006Q1

REPORT INFORMATION
  Report Type: 
  Country: None (occurrence: None)
  Receive Date: 20060127
  Receipt Date: 20050225
  Transmission Date: 20060701
  Serious: No
  Sender: FDA-Public Use
  Company Number: 2004-05341

PATIENT
  Age: 48 Year
  Sex: Female

DRUGS (4)
  1. BUPROPION HYDROCHLORIDE [Suspect]
     Indication: DEPRESSION
     Dosage: 150MG TWICE PER DAY
     Route: 048
     Dates: start: 20040607
  2. NITROFURANTOIN [Concomitant]
     Indication: MICTURITION DISORDER
     Dates: start: 20041101
  3. DITROPAN [Concomitant]
     Indication: MICTURITION DISORDER
     Dates: start: 20041001
  4. MONOCYCLINE [Concomitant]
     Indication: ACNE

REACTIONS (2)
  - URINE COLOUR ABNORMAL [None]
  - URINE ODOUR ABNORMAL [None]
